FAERS Safety Report 4395992-3 (Version None)
Quarter: 2004Q2

REPORT INFORMATION
  Report Type: 
  Country: None (occurrence: None)
  Receive Date: 20040621
  Receipt Date: 20031117
  Transmission Date: 20050107
  Serious: Yes (Hospitalization, Other)
  Sender: FDA-Public Use
  Company Number: USA-2003-0010852

PATIENT
  Sex: Female
  Weight: 54.4 kg

DRUGS (8)
  1. OXYCONTIN [Suspect]
     Indication: PAIN
     Dosage: 10 MG, BID; ORAL
     Route: 048
  2. FENTANYL [Suspect]
     Indication: PAIN
     Dosage: UNK UNK, UNK, UNKNOWN
     Route: 065
  3. CELEXA [Concomitant]
  4. ZONEGRAN [Concomitant]
  5. ACTIQ [Concomitant]
  6. ZOFRAN [Concomitant]
  7. CECLOR [Concomitant]
  8. ZANTAC [Concomitant]

REACTIONS (8)
  - ABDOMINAL DISCOMFORT [None]
  - ANXIETY [None]
  - BURNING SENSATION [None]
  - DEPRESSION [None]
  - DRUG DEPENDENCE [None]
  - DRUG WITHDRAWAL SYNDROME [None]
  - INSOMNIA [None]
  - PAIN [None]
